FAERS Safety Report 19741580 (Version 4)
Quarter: 2021Q4

REPORT INFORMATION
  Report Type: Report from Study
  Country: GB (occurrence: GB)
  Receive Date: 20210824
  Receipt Date: 20211103
  Transmission Date: 20220303
  Serious: Yes (Hospitalization, Other)
  Sender: FDA-Public Use
  Company Number: NVSC2021GB185662

PATIENT
  Age: 59 Year
  Sex: Female

DRUGS (2)
  1. KISQALI [Suspect]
     Active Substance: RIBOCICLIB
     Indication: Breast cancer
     Dosage: UNK (6 CYCLES OF TREATMENT)
     Route: 048
     Dates: start: 20210715
  2. KISQALI [Suspect]
     Active Substance: RIBOCICLIB
     Dosage: 600 MG, QD (ONCE A DAY FOR 3 WEEKS, ONE WEEK OFF, REPEAT CYCLE)
     Route: 048
     Dates: start: 20210720

REACTIONS (8)
  - Ascites [Recovering/Resolving]
  - Dyspnoea [Unknown]
  - Overflow diarrhoea [Recovered/Resolved]
  - Constipation [Unknown]
  - Hypertension [Recovered/Resolved]
  - Illness [Recovered/Resolved]
  - Malaise [Unknown]
  - Vomiting [Recovered/Resolved]

NARRATIVE: CASE EVENT DATE: 20210907
